FAERS Safety Report 22259662 (Version 1)
Quarter: 2023Q2

REPORT INFORMATION
  Report Type: Spontaneous
  Country: US (occurrence: None)
  Receive Date: 20230426
  Receipt Date: 20230426
  Transmission Date: 20230721
  Serious: No
  Sender: FDA-Public Use
  Company Number: None

PATIENT
  Age: 71 Year
  Sex: Female
  Weight: 85.5 kg

DRUGS (7)
  1. OZEMPIC [Suspect]
     Active Substance: SEMAGLUTIDE
     Indication: Type 2 diabetes mellitus
     Dosage: OTHER QUANTITY : .25 INJECTION(S);?
     Dates: start: 20230331, end: 20230421
  2. GLIMEPIRIDE [Concomitant]
     Active Substance: GLIMEPIRIDE
  3. paquinal [Concomitant]
  4. TIZANIDINE [Concomitant]
     Active Substance: TIZANIDINE
  5. CALCIUM [Concomitant]
     Active Substance: CALCIUM
  6. GLUCOSAMINE [Concomitant]
     Active Substance: GLUCOSAMINE
  7. cranberry capsules [Concomitant]

REACTIONS (5)
  - Diarrhoea [None]
  - Vomiting [None]
  - Abdominal pain upper [None]
  - Flatulence [None]
  - Asthenia [None]

NARRATIVE: CASE EVENT DATE: 20230421
